FAERS Safety Report 4411460-4 (Version None)
Quarter: 2004Q2

REPORT INFORMATION
  Report Type: 
  Country: None (occurrence: None)
  Receive Date: 20040630
  Receipt Date: 20040525
  Transmission Date: 20050107
  Serious: No
  Sender: FDA-Public Use
  Company Number: 04P-163-0261939-00

PATIENT
  Age: 68 Year
  Sex: Female
  Weight: 78.9259 kg

DRUGS (8)
  1. HUMIRA [Suspect]
     Indication: RHEUMATOID ARTHRITIS
     Dosage: 40 MG, 1 IN 2 WK, SUBCUTANEOUS
     Route: 058
     Dates: start: 20030301, end: 20040401
  2. PANTOPRAZOLE [Concomitant]
  3. GABAPENTIN [Concomitant]
  4. CITALOPRAM HYDROBROMIDE [Concomitant]
  5. LEVOTHYROXINE SODIUM [Concomitant]
  6. ECOTRACE [Concomitant]
  7. FEXOFENADINE HYDROCHLORIDE [Concomitant]
  8. RIZATRIPTAN BENZOATE [Concomitant]

REACTIONS (3)
  - DIABETES MELLITUS [None]
  - RESPIRATORY TRACT INFECTION [None]
  - SINUSITIS [None]
